FAERS Safety Report 8846945 (Version 1)
Quarter: 2012Q4

REPORT INFORMATION
  Report Type: Spontaneous
  Country: US (occurrence: None)
  Receive Date: 20121017
  Receipt Date: 20121017
  Transmission Date: 20130627
  Serious: Yes (Disabling)
  Sender: FDA-Public Use
  Company Number: None

PATIENT
  Age: 39 Year
  Sex: Male
  Weight: 122.47 kg

DRUGS (1)
  1. IRBESARTAN [Suspect]
     Dates: start: 20120807, end: 20120810

REACTIONS (2)
  - Intraocular pressure increased [None]
  - Visual impairment [None]
